FAERS Safety Report 7028698-2 (Version None)
Quarter: 2010Q4

REPORT INFORMATION
  Report Type: 
  Country: None (occurrence: None)
  Receive Date: 20101005
  Receipt Date: 20100923
  Transmission Date: 20110411
  Serious: Yes (Hospitalization, Other)
  Sender: FDA-Public Use
  Company Number: NL-PFIZER INC-2010109207

PATIENT
  Age: 57 Year
  Sex: Female

DRUGS (5)
  1. PHENYTOIN SODIUM CAP [Suspect]
     Indication: STATUS EPILEPTICUS
     Dosage: UNK
     Route: 042
     Dates: start: 20100827, end: 20100828
  2. CARBAMAZEPINE [Concomitant]
     Dosage: UNK
  3. LAMOTRIGINE [Concomitant]
     Dosage: UNK
  4. FRISIUM [Concomitant]
     Dosage: UNK
  5. DEPAKENE [Concomitant]
     Dosage: UNK

REACTIONS (5)
  - BLISTER [None]
  - ERYTHEMA [None]
  - INCORRECT ROUTE OF DRUG ADMINISTRATION [None]
  - SKIN NECROSIS [None]
  - SKIN OEDEMA [None]
